FAERS Safety Report 5648949-6 (Version None)
Quarter: 2008Q1

REPORT INFORMATION
  Report Type: 
  Country: None (occurrence: None)
  Receive Date: 20080304
  Receipt Date: 20080226
  Transmission Date: 20080703
  Serious: Yes (Life-Threatening)
  Sender: FDA-Public Use
  Company Number: PT-AVENTIS-200811818GDDC

PATIENT
  Age: 54 Year
  Sex: Female

DRUGS (4)
  1. TAXOTERE [Suspect]
     Route: 042
     Dates: start: 20071011, end: 20071011
  2. ONDANSETRON HYDROCHLORIDE [Concomitant]
     Dosage: DOSE: 1 UNIT
     Route: 042
     Dates: start: 20071011
  3. CLEMASTINE FUMARATE [Concomitant]
     Dosage: DOSE: 1 UNIT
     Route: 042
     Dates: start: 20071011
  4. DEXAMETHASONE TAB [Concomitant]
     Route: 042
     Dates: start: 20071011

REACTIONS (4)
  - BACK PAIN [None]
  - ERYTHEMA [None]
  - HYPERHIDROSIS [None]
  - TACHYCARDIA [None]
